FAERS Safety Report 12921172 (Version 1)
Quarter: 2016Q4

REPORT INFORMATION
  Report Type: Spontaneous
  Country: US (occurrence: US)
  Receive Date: 20161107
  Receipt Date: 20161107
  Transmission Date: 20170207
  Serious: No
  Sender: FDA-Public Use
  Company Number: US-TARO-2016TAR00719

PATIENT
  Age: 76 Year
  Sex: Female

DRUGS (2)
  1. UNSPECIFIED SUPPLEMENTS [Concomitant]
  2. TRIAMCINOLONE ACETONIDE DENTAL PASTE USP 0.1% [Suspect]
     Active Substance: TRIAMCINOLONE ACETONIDE
     Indication: ORAL DISCOMFORT
     Dosage: UNK
     Route: 050
     Dates: start: 201607, end: 201607

REACTIONS (2)
  - Drug ineffective [Recovered/Resolved]
  - Discomfort [Unknown]

NARRATIVE: CASE EVENT DATE: 201607
